FAERS Safety Report 5229064-2 (Version None)
Quarter: 2007Q1

REPORT INFORMATION
  Report Type: 
  Country: None (occurrence: None)
  Receive Date: 20061201
  Receipt Date: 20060810
  Transmission Date: 20070707
  Serious: No
  Sender: FDA-Public Use
  Company Number: US200608002421

PATIENT
  Age: 58 Year
  Sex: Female

DRUGS (1)
  1. CYMBALTA [Suspect]
     Indication: RHEUMATOID ARTHRITIS
     Dosage: 30 MG UNK ORAL
     Route: 048
     Dates: start: 20060809

REACTIONS (7)
  - ASTHENIA [None]
  - DISCOMFORT [None]
  - HYPERHIDROSIS [None]
  - RESTLESSNESS [None]
  - TEMPERATURE REGULATION DISORDER [None]
  - TREMOR [None]
  - VISION BLURRED [None]
